FAERS Safety Report 9007235 (Version 2)
Quarter: 2013Q1

REPORT INFORMATION
  Report Type: Spontaneous
  Country: DE (occurrence: DE)
  Receive Date: 20130110
  Receipt Date: 20130125
  Transmission Date: 20140127
  Serious: Yes (Hospitalization)
  Sender: FDA-Public Use
  Company Number: DE-ROCHE-1178394

PATIENT
  Sex: Male
  Weight: 81 kg

DRUGS (5)
  1. RITUXIMAB [Suspect]
     Indication: GLOMERULONEPHRITIS MEMBRANOUS
     Route: 042
     Dates: start: 20130102
  2. FUROSEMIDE [Concomitant]
     Indication: NEPHROTIC SYNDROME
     Route: 065
  3. DECORTIN [Concomitant]
     Indication: GLOMERULONEPHRITIS MEMBRANOUS
     Route: 048
  4. SIMVASTATINE [Concomitant]
     Indication: NEPHROTIC SYNDROME
     Route: 048
  5. COTRIMOXAZOLE [Concomitant]
     Indication: ANTIFUNGAL PROPHYLAXIS
     Route: 048
     Dates: start: 20130104, end: 20130114

REACTIONS (1)
  - Oedematous pancreatitis [Recovered/Resolved]
